FAERS Safety Report 5577006-2 (Version None)
Quarter: 2007Q4

REPORT INFORMATION
  Report Type: 
  Country: None (occurrence: None)
  Receive Date: 20071228
  Receipt Date: 20071218
  Transmission Date: 20080405
  Serious: Yes (Hospitalization, Other)
  Sender: FDA-Public Use
  Company Number: BR-ABBOTT-07P-020-0430829-00

PATIENT
  Age: 60 Year
  Sex: Male
  Weight: 96 kg

DRUGS (4)
  1. HUMIRA [Suspect]
     Indication: RHEUMATOID ARTHRITIS
     Route: 058
     Dates: start: 20051201, end: 20061201
  2. HUMIRA [Suspect]
     Route: 058
  3. DEFLAZACORT [Suspect]
     Indication: RHEUMATOID ARTHRITIS
  4. NAPROXEN [Concomitant]
     Indication: RHEUMATOID ARTHRITIS
     Route: 048

REACTIONS (6)
  - CARTILAGE ATROPHY [None]
  - HAEMORRHAGE [None]
  - NAUSEA [None]
  - OEDEMA PERIPHERAL [None]
  - SINUSITIS [None]
  - VOMITING [None]
